FAERS Safety Report 13024158 (Version 1)
Quarter: 2016Q4

REPORT INFORMATION
  Report Type: Spontaneous
  Country: US (occurrence: US)
  Receive Date: 20161213
  Receipt Date: 20161213
  Transmission Date: 20170207
  Serious: Yes (Death)
  Sender: FDA-Public Use
  Company Number: US-PFIZER INC-2016571024

PATIENT
  Age: 66 Year
  Sex: Male

DRUGS (5)
  1. OSELTAMIVIR [Suspect]
     Active Substance: OSELTAMIVIR
     Indication: PNEUMONIA ADENOVIRAL
     Dosage: UNK
  2. PIPERACILLIN/TAZOBACTAM [Suspect]
     Active Substance: PIPERACILLIN SODIUM\TAZOBACTAM SODIUM
     Indication: PNEUMONIA ADENOVIRAL
     Dosage: UNK
  3. EPOPROSTENOL. [Concomitant]
     Active Substance: EPOPROSTENOL
     Indication: ACUTE RESPIRATORY DISTRESS SYNDROME
     Dosage: UNK
  4. CIDOFOVIR. [Suspect]
     Active Substance: CIDOFOVIR
     Indication: PNEUMONIA ADENOVIRAL
     Dosage: UNK
  5. VANCOMYCIN HCL [Suspect]
     Active Substance: VANCOMYCIN HYDROCHLORIDE
     Indication: PNEUMONIA ADENOVIRAL
     Dosage: UNK

REACTIONS (5)
  - Acute kidney injury [None]
  - Drug ineffective [Fatal]
  - Cardiac arrest [None]
  - Acute respiratory distress syndrome [None]
  - Shock [None]
